FAERS Safety Report 16806065 (Version 1)
Quarter: 2019Q3

REPORT INFORMATION
  Report Type: Spontaneous
  Country: NL (occurrence: FR)
  Receive Date: 20190913
  Receipt Date: 20190913
  Transmission Date: 20191005
  Serious: Yes (Hospitalization)
  Sender: FDA-Public Use
  Company Number: FR-FRESENIUS KABI-FK201909907

PATIENT
  Age: 35 Year
  Sex: Male
  Weight: 94 kg

DRUGS (1)
  1. ROPIVACAINE FRESENIUS KABI 7.5MG/ML [Suspect]
     Active Substance: ROPIVACAINE HYDROCHLORIDE
     Indication: LOCAL ANAESTHESIA
     Route: 051
     Dates: start: 20190821, end: 20190821

REACTIONS (4)
  - Facial paralysis [Recovered/Resolved]
  - Paraesthesia oral [Recovered/Resolved]
  - Dysgeusia [Recovered/Resolved]
  - Hemiplegia [Recovered/Resolved]

NARRATIVE: CASE EVENT DATE: 20190821
